FAERS Safety Report 6525263-8 (Version None)
Quarter: 2010Q1

REPORT INFORMATION
  Report Type: 
  Country: None (occurrence: None)
  Receive Date: 20100104
  Receipt Date: 20091221
  Transmission Date: 20100710
  Serious: Yes (Other)
  Sender: FDA-Public Use
  Company Number: US-PFIZER INC-2005055837

PATIENT
  Sex: Female
  Weight: 46.27 kg

DRUGS (3)
  1. LIPITOR [Suspect]
     Dosage: 10 MG, 1X/DAY
     Route: 048
     Dates: end: 20090301
  2. METOPROLOL TARTRATE [Concomitant]
     Route: 065
  3. ALPRAZOLAM [Concomitant]
     Route: 065

REACTIONS (9)
  - BLOOD CHOLESTEROL INCREASED [None]
  - BLOOD PRESSURE INCREASED [None]
  - FATIGUE [None]
  - FLUID RETENTION [None]
  - INCREASED APPETITE [None]
  - MUSCLE SPASMS [None]
  - MYALGIA [None]
  - POLLAKIURIA [None]
  - WEIGHT INCREASED [None]
